FAERS Safety Report 19950640 (Version 2)
Quarter: 2021Q4

REPORT INFORMATION
  Report Type: Spontaneous
  Country: CH (occurrence: CH)
  Receive Date: 20211013
  Receipt Date: 20211105
  Transmission Date: 20220304
  Serious: Yes (Hospitalization)
  Sender: FDA-Public Use
  Company Number: CH-MERCK HEALTHCARE KGAA-9269736

PATIENT
  Age: 75 Year
  Sex: Female
  Weight: 88 kg

DRUGS (9)
  1. ERBITUX [Suspect]
     Active Substance: CETUXIMAB
     Indication: Colon cancer metastatic
     Dosage: UNK, UNKNOWN
     Route: 065
     Dates: start: 202009
  2. LEUCOVORIN [Concomitant]
     Active Substance: LEUCOVORIN
     Indication: Colon cancer metastatic
     Dosage: UNK, UNKNOWN
     Route: 065
  3. IRINOTECAN [Concomitant]
     Active Substance: IRINOTECAN
     Indication: Colon cancer metastatic
     Dosage: UNK, UNKNOWN
     Route: 065
  4. FLUOROURACIL [Concomitant]
     Active Substance: FLUOROURACIL
     Indication: Colon cancer metastatic
     Dosage: UNK UNK, UNKNOWN
     Route: 065
  5. PERINDOPRIL [Concomitant]
     Active Substance: PERINDOPRIL
     Indication: Hypertension
     Dosage: 5 MG, UNK
     Route: 065
  6. INDAPAMIDE [Concomitant]
     Active Substance: INDAPAMIDE
     Indication: Hypertension
     Dosage: 1.25 MG, UNK
     Route: 065
  7. EPLERENONE [Concomitant]
     Active Substance: EPLERENONE
     Indication: Hypertension
     Dosage: 25 MG, UNK
     Route: 065
  8. BISOPROLOL [Concomitant]
     Active Substance: BISOPROLOL
     Indication: Atrial fibrillation
     Dosage: 12.5 MG, UNK
     Route: 065
  9. APIXABAN [Concomitant]
     Active Substance: APIXABAN
     Indication: Atrial fibrillation
     Dosage: 5 MG, UNK
     Route: 065

REACTIONS (21)
  - Wernicke^s encephalopathy [Recovered/Resolved]
  - Vitamin B1 deficiency [Unknown]
  - Paraesthesia [Unknown]
  - Disorientation [Unknown]
  - Personality disorder [Unknown]
  - Apathy [Unknown]
  - Myoclonus [Unknown]
  - Hyporeflexia [Unknown]
  - Visual impairment [Unknown]
  - Aphasia [Unknown]
  - Duodenal ulcer [Unknown]
  - Hypophagia [Unknown]
  - Vitamin D deficiency [Unknown]
  - Gait disturbance [Unknown]
  - Blood parathyroid hormone increased [Unknown]
  - General physical health deterioration [Unknown]
  - Hypokalaemia [Recovering/Resolving]
  - Weight decreased [Unknown]
  - Hypomagnesaemia [Not Recovered/Not Resolved]
  - Asthenia [Unknown]
  - Hypocalcaemia [Recovering/Resolving]
